FAERS Safety Report 5192132-8 (Version None)
Quarter: 2006Q4

REPORT INFORMATION
  Report Type: 
  Country: None (occurrence: None)
  Receive Date: 20061220
  Receipt Date: 20061213
  Transmission Date: 20070319
  Serious: Yes (Death, Hospitalization)
  Sender: FDA-Public Use
  Company Number: 2006SP006092

PATIENT
  Age: 71 Year
  Sex: Male
  Weight: 55 kg

DRUGS (1)
  1. TEMODAL                                 (TEMOZOLOMIDE) [Suspect]
     Indication: GLIOBLASTOMA MULTIFORME
     Dosage: 150 MCG/M2;QD;PO
     Route: 048
     Dates: start: 20061004, end: 20061008

REACTIONS (4)
  - DISEASE PROGRESSION [None]
  - ENTEROCOLITIS BACTERIAL [None]
  - GASTROENTERITIS ESCHERICHIA COLI [None]
  - IMMUNE SYSTEM DISORDER [None]
